FAERS Safety Report 12154385 (Version 4)
Quarter: 2019Q4

REPORT INFORMATION
  Report Type: Spontaneous
  Country: US (occurrence: US)
  Receive Date: 20160307
  Receipt Date: 20191016
  Transmission Date: 20200122
  Serious: No
  Sender: FDA-Public Use
  Company Number: US-PFIZER INC-2016085376

PATIENT
  Age: 71 Year
  Sex: Female
  Weight: 128.8 kg

DRUGS (3)
  1. LYRICA [Suspect]
     Active Substance: PREGABALIN
     Indication: NEUROPATHY PERIPHERAL
     Dosage: 300 MG, 2X/DAY (00 MG 1 CAPSULE 2 TIMES)
  2. ASACOL [Concomitant]
     Active Substance: MESALAMINE
     Indication: COLITIS
     Dosage: 1 DF, 3X/DAY (1 TABLET 3 TIMES A DAY WITH MEALS, BREAKFAST., LUNCH AND DINNER)
  3. LYRICA [Suspect]
     Active Substance: PREGABALIN
     Indication: FIBROMYALGIA
     Dosage: 50 MG, 3X/DAY
     Dates: start: 201601, end: 20160205

REACTIONS (2)
  - Insomnia [Unknown]
  - Infection [Unknown]

NARRATIVE: CASE EVENT DATE: 2019
